FAERS Safety Report 6877508-2 (Version None)
Quarter: 2010Q3

REPORT INFORMATION
  Report Type: 
  Country: None (occurrence: None)
  Receive Date: 20100727
  Receipt Date: 20100204
  Transmission Date: 20110219
  Serious: No
  Sender: FDA-Public Use
  Company Number: US-ABBOTT-09P-163-0611584-00

PATIENT
  Sex: Male

DRUGS (5)
  1. SYNTHROID [Suspect]
     Indication: HYPOTHYROIDISM
     Dates: start: 20050101
  2. PRAVACHOL [Concomitant]
     Indication: BLOOD CHOLESTEROL INCREASED
  3. RANITIDINE [Concomitant]
     Indication: GASTROOESOPHAGEAL REFLUX DISEASE
  4. IBUPROFEN TABLETS [Concomitant]
     Indication: INSOMNIA
  5. MELATONIN [Concomitant]
     Indication: INSOMNIA
     Dosage: UNKNOWN

REACTIONS (5)
  - DRUG INEFFECTIVE [None]
  - FEELING ABNORMAL [None]
  - LETHARGY [None]
  - MAJOR DEPRESSION [None]
  - PERIPHERAL COLDNESS [None]
